FAERS Safety Report 8206766-7 (Version None)
Quarter: 2012Q1

REPORT INFORMATION
  Report Type: 
  Country: None (occurrence: None)
  Receive Date: 20120309
  Receipt Date: 20120305
  Transmission Date: 20120608
  Serious: Yes (Life-Threatening, Hospitalization)
  Sender: FDA-Public Use
  Company Number: WAES 1107USA01535

PATIENT
  Age: 67 Year
  Sex: Male

DRUGS (10)
  1. ACTRAPHANE MC [Concomitant]
  2. METFORMIN HYDROCHLORIDE [Concomitant]
  3. PLACEBO [Suspect]
     Indication: ACUTE CORONARY SYNDROME
     Dosage: PO
     Route: 048
     Dates: start: 20090401
  4. VYTORIN [Suspect]
     Indication: ACUTE CORONARY SYNDROME
     Dosage: 10-40 MG/DAILY, PO
     Route: 048
     Dates: start: 20090401
  5. PLACEBO [Suspect]
     Indication: ACUTE CORONARY SYNDROME
     Dosage: PO
     Dates: start: 20090401
  6. METOPROLOL TARTRATE AND HYDROCHLOROTHIAZIDE [Concomitant]
  7. RAMIPRIL [Concomitant]
  8. FALITHROM [Concomitant]
  9. PLETAL [Concomitant]
  10. TORSEMIDE [Concomitant]

REACTIONS (2)
  - GASTROINTESTINAL CARCINOMA [None]
  - DIABETIC FOOT [None]
